FAERS Safety Report 5437593-1 (Version None)
Quarter: 2007Q3

REPORT INFORMATION
  Report Type: 
  Country: None (occurrence: None)
  Receive Date: 20070831
  Receipt Date: 20070820
  Transmission Date: 20080115
  Serious: Yes (Death)
  Sender: FDA-Public Use
  Company Number: US-ROCHE-512573

PATIENT
  Age: 72 Year
  Sex: Male
  Weight: 90.7 kg

DRUGS (20)
  1. CAPECITABINE [Suspect]
     Indication: NON-SMALL CELL LUNG CANCER METASTATIC
     Dosage: DAYS 5-18
     Route: 048
     Dates: start: 20070526, end: 20070608
  2. CAPECITABINE [Suspect]
     Dosage: DAYS 5-18
     Route: 048
     Dates: start: 20070623, end: 20070629
  3. DOCETAXEL [Suspect]
     Indication: NON-SMALL CELL LUNG CANCER METASTATIC
     Dosage: ADMINISTERED ON DAYS 1, 8 AND 15 DOSE 77MG/250ML
     Route: 042
     Dates: start: 20070522
  4. ZOCOR [Concomitant]
  5. PLENDIL [Concomitant]
  6. ZESTRIL [Concomitant]
  7. LASIX [Concomitant]
  8. COREG [Concomitant]
  9. METFORMIN HCL [Concomitant]
  10. UNSPECIFIED DRUG [Concomitant]
     Dosage: REPORTED AS MEGACE
  11. LANTUS [Concomitant]
  12. NOVOLOG [Concomitant]
  13. COMBIVENT [Concomitant]
  14. DECADRON [Concomitant]
     Dosage: WITH CHEMO
  15. IRON [Concomitant]
  16. ZOFRAN [Concomitant]
  17. COMPAZINE [Concomitant]
  18. EMEND [Concomitant]
  19. FOLIC ACID [Concomitant]
  20. PROCRIT [Concomitant]

REACTIONS (1)
  - DEATH [None]
